FAERS Safety Report 19934861 (Version 2)
Quarter: 2021Q4

REPORT INFORMATION
  Report Type: Spontaneous
  Country: US (occurrence: US)
  Receive Date: 20211009
  Receipt Date: 20211019
  Transmission Date: 20220303
  Serious: Yes (Death, Other)
  Sender: FDA-Public Use
  Company Number: US-009507513-2110USA001641

PATIENT
  Age: 82 Year
  Sex: Male

DRUGS (1)
  1. KEYTRUDA [Suspect]
     Active Substance: PEMBROLIZUMAB
     Indication: Lung neoplasm malignant
     Route: 042

REACTIONS (4)
  - Death [Fatal]
  - Acute myocardial infarction [Unknown]
  - Akinesia [Unknown]
  - Thrombosis [Unknown]

NARRATIVE: CASE EVENT DATE: 20211004
